FAERS Safety Report 10214359 (Version 1)
Quarter: 2014Q2

REPORT INFORMATION
  Report Type: Spontaneous
  Country: CN (occurrence: CN)
  Receive Date: 20140603
  Receipt Date: 20140603
  Transmission Date: 20141212
  Serious: Yes (Hospitalization, Other)
  Sender: FDA-Public Use
  Company Number: CN-ASTRAZENECA-2014SE36973

PATIENT
  Sex: Female
  Weight: 49 kg

DRUGS (2)
  1. ESOMEPRAZOLE MAGNESIUM [Suspect]
     Indication: GASTRITIS
     Route: 048
     Dates: start: 20130916, end: 20130916
  2. BACILLUS SUBTILIS DUPLEX LIVING BACTERIUM [Suspect]
     Indication: DYSPEPSIA
     Route: 048
     Dates: start: 20130916, end: 20130916

REACTIONS (4)
  - Chest discomfort [Recovering/Resolving]
  - Eye swelling [Recovering/Resolving]
  - Tachypnoea [Recovering/Resolving]
  - Dizziness [Recovering/Resolving]
